FAERS Safety Report 7325845-X (Version None)
Quarter: 2011Q1

REPORT INFORMATION
  Report Type: 
  Country: None (occurrence: None)
  Receive Date: 20110302
  Receipt Date: 20110222
  Transmission Date: 20110831
  Serious: Yes (Death, Hospitalization)
  Sender: FDA-Public Use
  Company Number: DE-ELI_LILLY_AND_COMPANY-DE201102006014

PATIENT
  Sex: Male
  Weight: 83.9 kg

DRUGS (11)
  1. METOPROLOL [Concomitant]
     Indication: HYPERTENSION
     Dosage: 100 MG, UNK
     Dates: start: 20080101
  2. RAMIPRIL [Concomitant]
     Indication: HYPERTENSION
     Dosage: 2.5 MBQ, UNK
     Dates: start: 20080101
  3. METAMIZOL [Concomitant]
     Indication: TUMOUR PAIN
     Dosage: 500 MG, UNK
     Dates: start: 20100801
  4. TRAMADOL [Concomitant]
     Indication: TUMOUR PAIN
     Dosage: 50 MMOL, UNK
     Dates: start: 20100928
  5. MAGNESIUM HYDROGEN ASPARTATE [Concomitant]
     Indication: HYPOMAGNESAEMIA
     Dates: start: 20100928
  6. DICLOFENAC [Concomitant]
     Indication: TUMOUR PAIN
     Dosage: 50 MG, UNK
     Dates: start: 20100801
  7. CISPLATIN [Suspect]
     Indication: NON-SMALL CELL LUNG CANCER
     Dosage: 150 MG, OTHER
     Route: 042
     Dates: start: 20100929
  8. SIMVASTATIN [Concomitant]
     Indication: HYPERCHOLESTEROLAEMIA
     Dosage: 40 MG, UNK
     Dates: start: 20080101
  9. MOLSIDOMIN [Concomitant]
     Indication: CORONARY ARTERY DISEASE
     Dates: start: 20080101
  10. HYDROCHLORZIDE [Concomitant]
     Indication: HYPERTENSION
     Dosage: 25 MG, UNK
     Dates: start: 20080101
  11. PEMETREXED [Suspect]
     Indication: NON-SMALL CELL LUNG CANCER
     Dosage: 1000 MG, OTHER
     Route: 042
     Dates: start: 20100929

REACTIONS (4)
  - DISEASE PROGRESSION [None]
  - FLANK PAIN [None]
  - HYPONATRAEMIA [None]
  - LEUKOPENIA [None]
